FAERS Safety Report 10568257 (Version 1)
Quarter: 2014Q4

REPORT INFORMATION
  Report Type: Spontaneous
  Country: US (occurrence: None)
  Receive Date: 20141105
  Receipt Date: 20141105
  Transmission Date: 20150529
  Serious: No
  Sender: FDA-Public Use
  Company Number: None

PATIENT
  Age: 41 Year
  Sex: Female
  Weight: 65.77 kg

DRUGS (2)
  1. FLUCONAZOLE. [Suspect]
     Active Substance: FLUCONAZOLE
     Dosage: 16
     Route: 048
     Dates: start: 20141004, end: 20141103
  2. FLUCONAZOLE. [Suspect]
     Active Substance: FLUCONAZOLE
     Indication: INFECTION PROTOZOAL
     Dosage: 16
     Route: 048
     Dates: start: 20141004, end: 20141103

REACTIONS (2)
  - Chest pain [None]
  - Palpitations [None]

NARRATIVE: CASE EVENT DATE: 20141103
